FAERS Safety Report 5341879-9 (Version None)
Quarter: 2007Q2

REPORT INFORMATION
  Report Type: 
  Country: None (occurrence: None)
  Receive Date: 20070529
  Receipt Date: 20070529
  Transmission Date: 20071010
  Serious: Yes (Death, Hospitalization)
  Sender: FDA-Public Use
  Company Number: None

PATIENT
  Sex: Female
  Weight: 81.8 kg

DRUGS (4)
  1. CYCLOPHOSPHAMIDE [Suspect]
     Dosage: 1122 MG
     Dates: end: 20070510
  2. DOXORUBICIN HYDROCHLORIDE [Suspect]
     Dosage: 112 MG
     Dates: end: 20070510
  3. DEXAMETHASONE 0.5MG TAB [Concomitant]
  4. NEULASTA INJECTION [Concomitant]

REACTIONS (8)
  - CHEST PAIN [None]
  - CHRONIC OBSTRUCTIVE PULMONARY DISEASE [None]
  - COUGH [None]
  - DEPRESSED LEVEL OF CONSCIOUSNESS [None]
  - MUSCULOSKELETAL PAIN [None]
  - NEUTROPENIA [None]
  - PLEURITIC PAIN [None]
  - SPUTUM PURULENT [None]
